FAERS Safety Report 9783068 (Version 2)
Quarter: 2013Q4

REPORT INFORMATION
  Report Type: Report from Study
  Country: PL (occurrence: PL)
  Receive Date: 20131226
  Receipt Date: 20131226
  Transmission Date: 20140711
  Serious: Yes (Death, Other)
  Sender: FDA-Public Use
  Company Number: PHHO2012PL011187

PATIENT
  Age: 27 Year
  Sex: Male
  Weight: 104 kg

DRUGS (7)
  1. SOM230 [Suspect]
     Indication: ACROMEGALY
     Dosage: 40 MG, UNK
     Route: 030
     Dates: start: 20110615
  2. SOM230 [Suspect]
     Dosage: 60 MG/MONTH
     Route: 030
     Dates: end: 20120711
  3. HYDROCORTISONE [Concomitant]
     Dosage: 10 MG, BID
     Route: 048
  4. EUTHYROX [Concomitant]
     Dosage: 200 MG, QD
     Route: 048
  5. MINIRIN [Concomitant]
     Dosage: 10 UG, BID
     Route: 048
  6. OMNADREN [Concomitant]
     Dosage: 250 MG, EVERY 3 WEEKS
     Route: 030
  7. BROMERGON [Concomitant]
     Dosage: 2.5 MG, QD
     Route: 048

REACTIONS (2)
  - Diabetes mellitus [Not Recovered/Not Resolved]
  - Sudden death [Fatal]
